FAERS Safety Report 6575797-5 (Version None)
Quarter: 2010Q1

REPORT INFORMATION
  Report Type: 
  Country: None (occurrence: None)
  Receive Date: 20100209
  Receipt Date: 20100128
  Transmission Date: 20100710
  Serious: Yes (Other)
  Sender: FDA-Public Use
  Company Number: US-JNJFOC-20100200090

PATIENT
  Sex: Female
  Weight: 84.82 kg

DRUGS (1)
  1. NUCYNTA [Suspect]
     Indication: MIGRAINE
     Dosage: EVERY 4-6 HOURS AS NEEDED
     Route: 048

REACTIONS (4)
  - DRUG SCREEN POSITIVE [None]
  - PERITONSILLAR ABSCESS [None]
  - PHARYNGITIS STREPTOCOCCAL [None]
  - TONSILLITIS [None]
